FAERS Safety Report 20658970 (Version 4)
Quarter: 2025Q3

REPORT INFORMATION
  Report Type: Report from Study
  Country: CA (occurrence: CA)
  Receive Date: 20220331
  Receipt Date: 20250911
  Transmission Date: 20251020
  Serious: Yes (Other)
  Sender: TAKEDA
  Company Number: CA-TAKEDA-2019TUS012107

PATIENT
  Sex: Male

DRUGS (14)
  1. VEDOLIZUMAB [Suspect]
     Active Substance: VEDOLIZUMAB
     Indication: Crohn^s disease
  2. VEDOLIZUMAB [Suspect]
     Active Substance: VEDOLIZUMAB
     Dosage: 300 MILLIGRAM, Q4WEEKS
     Dates: start: 20191004
  3. VEDOLIZUMAB [Suspect]
     Active Substance: VEDOLIZUMAB
     Dosage: 300 MILLIGRAM, Q4WEEKS
  4. VEDOLIZUMAB [Suspect]
     Active Substance: VEDOLIZUMAB
     Dosage: 300 MILLIGRAM, Q4WEEKS
  5. VEDOLIZUMAB [Suspect]
     Active Substance: VEDOLIZUMAB
     Dosage: 300 MILLIGRAM, Q4WEEKS
  6. VEDOLIZUMAB [Suspect]
     Active Substance: VEDOLIZUMAB
     Dosage: 300 MILLIGRAM, Q4WEEKS
  7. VEDOLIZUMAB [Suspect]
     Active Substance: VEDOLIZUMAB
     Dosage: 300 MILLIGRAM, Q4WEEKS
  8. VEDOLIZUMAB [Suspect]
     Active Substance: VEDOLIZUMAB
     Dosage: 300 MILLIGRAM, Q4WEEKS
  9. VEDOLIZUMAB [Suspect]
     Active Substance: VEDOLIZUMAB
     Dosage: 300 MILLIGRAM, Q4WEEKS
  10. PANTOPRAZOLE SODIUM [Suspect]
     Active Substance: PANTOPRAZOLE SODIUM
     Indication: Product used for unknown indication
  11. MESALAMINE [Concomitant]
     Active Substance: MESALAMINE
     Dosage: 4.8 MILLIGRAM, QD
     Dates: start: 20130613
  12. PREDNISONE [Concomitant]
     Active Substance: PREDNISONE
  13. URSODIOL [Concomitant]
     Active Substance: URSODIOL
     Dosage: 500 MILLIGRAM, QD
     Dates: start: 2012
  14. VITAMIN D3 [Concomitant]
     Active Substance: CHOLECALCIFEROL

REACTIONS (8)
  - Crohn^s disease [Unknown]
  - Abdominal discomfort [Not Recovered/Not Resolved]
  - Mouth ulceration [Recovered/Resolved]
  - COVID-19 [Not Recovered/Not Resolved]
  - Influenza like illness [Recovered/Resolved]
  - Abdominal distension [Not Recovered/Not Resolved]
  - Nasopharyngitis [Recovered/Resolved]
  - Oropharyngeal pain [Unknown]

NARRATIVE: CASE EVENT DATE: 20190101
